FAERS Safety Report 7457479-0 (Version None)
Quarter: 2011Q2

REPORT INFORMATION
  Report Type: 
  Country: None (occurrence: None)
  Receive Date: 20110504
  Receipt Date: 20110425
  Transmission Date: 20111010
  Serious: Yes (Hospitalization, Other)
  Sender: FDA-Public Use
  Company Number: US-ELI_LILLY_AND_COMPANY-US201102000036

PATIENT
  Sex: Female

DRUGS (3)
  1. ADCIRCA [Suspect]
     Indication: PULMONARY ARTERIAL HYPERTENSION
     Dosage: 40 MG, DAILY (1/D)
     Route: 048
  2. LASIX [Concomitant]
  3. REMODULIN [Concomitant]
     Indication: PULMONARY ARTERIAL HYPERTENSION
     Dosage: 1 DF, UNK
     Route: 055
     Dates: end: 20110108

REACTIONS (3)
  - URINARY INCONTINENCE [None]
  - DISEASE PROGRESSION [None]
  - SYNCOPE [None]
